FAERS Safety Report 23794706 (Version 1)
Quarter: 2024Q2

REPORT INFORMATION
  Report Type: Report from Study
  Country: CA (occurrence: CA)
  Receive Date: 20240429
  Receipt Date: 20240429
  Transmission Date: 20240716
  Serious: Yes (Other)
  Sender: FDA-Public Use
  Company Number: CA-TEVA-VS-3182958

PATIENT
  Age: 77 Year
  Sex: Male
  Weight: 82 kg

DRUGS (19)
  1. CINQAIR [Suspect]
     Active Substance: RESLIZUMAB
     Indication: Asthma
     Dosage: LAST INFUSION DATE: 14-FEB-2024
     Route: 042
     Dates: start: 20191017
  2. ROSUVASTATIN [Concomitant]
     Active Substance: ROSUVASTATIN
  3. SPIRONOLACTONE [Concomitant]
     Active Substance: SPIRONOLACTONE
  4. PANTOPRAZOLE [Concomitant]
     Active Substance: PANTOPRAZOLE
  5. AMLODIPINE [Concomitant]
     Active Substance: AMLODIPINE BESYLATE
  6. TRAZODONE [Concomitant]
     Active Substance: TRAZODONE HYDROCHLORIDE
  7. SERTRALINE [Concomitant]
     Active Substance: SERTRALINE HYDROCHLORIDE
  8. AVALIDE [Concomitant]
     Active Substance: HYDROCHLOROTHIAZIDE\IRBESARTAN
  9. CLOPIDOGREL [Concomitant]
     Active Substance: CLOPIDOGREL BISULFATE
  10. BUPROPION [Concomitant]
     Active Substance: BUPROPION
  11. ASPIRIN [Concomitant]
     Active Substance: ASPIRIN
  12. Novo Rapid Toujeo [Concomitant]
  13. OZEMPIC [Concomitant]
     Active Substance: SEMAGLUTIDE
  14. ADVAIR HFA [Concomitant]
     Active Substance: FLUTICASONE PROPIONATE\SALMETEROL XINAFOATE
  15. FLOVENT [Concomitant]
     Active Substance: FLUTICASONE PROPIONATE
  16. SPIRIVA [Concomitant]
     Active Substance: TIOTROPIUM BROMIDE MONOHYDRATE
  17. VENTOLIN [Concomitant]
     Active Substance: ALBUTEROL SULFATE
     Dosage: TIME INTERVAL: AS NECESSARY
  18. COVID vaccine [Concomitant]
     Indication: COVID-19
     Dosage: RECEIVED 2ND DOSE VACCINE PFIZER 19-JUN-2021
     Dates: start: 20190315
  19. NUCALA [Concomitant]
     Active Substance: MEPOLIZUMAB

REACTIONS (3)
  - Muscular weakness [Recovering/Resolving]
  - Incorrect dose administered [Unknown]
  - White blood cell count increased [Unknown]

NARRATIVE: CASE EVENT DATE: 20240224
